FAERS Safety Report 20923322 (Version 2)
Quarter: 2022Q2

REPORT INFORMATION
  Report Type: Spontaneous
  Country: US (occurrence: US)
  Receive Date: 20220607
  Receipt Date: 20220613
  Transmission Date: 20220721
  Serious: Yes (Life-Threatening, Other)
  Sender: FDA-Public Use
  Company Number: US-002147023-NVSC2022US077130

PATIENT
  Age: 78 Year
  Sex: Female

DRUGS (1)
  1. AMIODARONE HYDROCHLORIDE [Suspect]
     Active Substance: AMIODARONE HYDROCHLORIDE
     Indication: Atrial fibrillation
     Dosage: 200 MILLIGRAM, ONCE A DAY
     Route: 048

REACTIONS (11)
  - Pulmonary toxicity [Recovering/Resolving]
  - Weight decreased [Recovering/Resolving]
  - Hyponatraemia [Unknown]
  - Decreased appetite [Recovering/Resolving]
  - Iron overload [Unknown]
  - Left ventricular hypertrophy [Unknown]
  - Iodine overload [Unknown]
  - Vomiting [Recovered/Resolved]
  - Liver disorder [Unknown]
  - Nausea [Recovered/Resolved]
  - Toxicity to various agents [Unknown]
